FAERS Safety Report 14544340 (Version 1)
Quarter: 2018Q1

REPORT INFORMATION
  Report Type: Spontaneous
  Country: US (occurrence: US)
  Receive Date: 20180215
  Receipt Date: 20180215
  Transmission Date: 20180509
  Serious: No
  Sender: FDA-Public Use
  Company Number: None

PATIENT
  Age: 57 Year
  Sex: Female

DRUGS (1)
  1. TALTZ [Suspect]
     Active Substance: IXEKIZUMAB
     Dosage: 80MG EVERY 4 WEEKS SC
     Route: 058

REACTIONS (3)
  - Rhinorrhoea [None]
  - Cough [None]
  - Oropharyngeal pain [None]

NARRATIVE: CASE EVENT DATE: 20180215
